FAERS Safety Report 10227646 (Version 1)
Quarter: 2014Q2

REPORT INFORMATION
  Report Type: Spontaneous
  Country: CN (occurrence: CN)
  Receive Date: 20140610
  Receipt Date: 20140610
  Transmission Date: 20141212
  Serious: Yes (Other)
  Sender: FDA-Public Use
  Company Number: CN-ASTRAZENECA-2014SE39951

PATIENT
  Age: 21284 Day
  Sex: Female
  Weight: 40 kg

DRUGS (3)
  1. ROSUVASTATIN CALCIUM [Suspect]
     Indication: BLOOD CHOLESTEROL ABNORMAL
     Route: 048
     Dates: start: 20130906
  2. ROSUVASTATIN CALCIUM [Suspect]
     Indication: BLOOD CHOLESTEROL ABNORMAL
     Route: 048
     Dates: start: 20130912, end: 20130916
  3. IBUPROFEN [Suspect]
     Indication: PAIN
     Route: 048
     Dates: start: 20130911, end: 20130916

REACTIONS (3)
  - Hepatocellular injury [Recovered/Resolved]
  - Myositis [Recovered/Resolved]
  - Myalgia [Recovered/Resolved]
